FAERS Safety Report 13558674 (Version 3)
Quarter: 2017Q3

REPORT INFORMATION
  Report Type: Report from Study
  Country: US (occurrence: US)
  Receive Date: 20170518
  Receipt Date: 20170807
  Transmission Date: 20171127
  Serious: Yes (Other)
  Sender: FDA-Public Use
  Company Number: PHHY2017US071073

PATIENT
  Age: 43 Year
  Sex: Female
  Weight: 71.7 kg

DRUGS (1)
  1. SIGNIFOR [Suspect]
     Active Substance: PASIREOTIDE
     Indication: HYPOGLYCAEMIA
     Dosage: 0.3 MG, QD
     Route: 058
     Dates: start: 20170406, end: 20170505

REACTIONS (8)
  - Headache [Recovered/Resolved]
  - Hyperglycaemia [Recovered/Resolved]
  - Toothache [Recovered/Resolved]
  - Tooth abscess [Recovered/Resolved]
  - Sinusitis [Recovered/Resolved]
  - Weight decreased [Recovered/Resolved with Sequelae]
  - Decreased appetite [Recovered/Resolved]
  - Paranasal sinus discomfort [Recovered/Resolved]

NARRATIVE: CASE EVENT DATE: 20170427
